FAERS Safety Report 24707928 (Version 1)
Quarter: 2024Q4

REPORT INFORMATION
  Report Type: Spontaneous
  Country: None (occurrence: US)
  Receive Date: 20241206
  Receipt Date: 20241206
  Transmission Date: 20250115
  Serious: Yes (Hospitalization)
  Sender: Krystal Biotech
  Company Number: US-KRYSTAL BIOTECH, INC.-2024KRYUS00125

PATIENT
  Age: 13 Year
  Sex: Male

DRUGS (1)
  1. VYJUVEK [Suspect]
     Active Substance: BEREMAGENE GEPERPAVEC-SVDT
     Indication: Epidermolysis bullosa
     Route: 061

REACTIONS (1)
  - Bacterial test positive [Unknown]

NARRATIVE: CASE EVENT DATE: 20240914
